FAERS Safety Report 6149070-3 (Version None)
Quarter: 2009Q2

REPORT INFORMATION
  Report Type: 
  Country: None (occurrence: None)
  Receive Date: 20090407
  Receipt Date: 20090327
  Transmission Date: 20091009
  Serious: Yes (Hospitalization)
  Sender: FDA-Public Use
  Company Number: CLOF-1000389

PATIENT
  Age: 11 Year
  Sex: Female
  Weight: 44.8 kg

DRUGS (11)
  1. CLOLAR [Suspect]
     Indication: B-CELL TYPE ACUTE LEUKAEMIA
     Dosage: 27.2 MG, QDX3, INTRAVENOUS
     Route: 042
     Dates: start: 20081202, end: 20081204
  2. CLOLAR [Suspect]
     Dosage: 27.2 MG, QDX3, INTRAVENOUS
     Route: 042
     Dates: start: 20081209, end: 20081211
  3. CYCLOPHOSPHAMIDE [Suspect]
     Indication: B-CELL TYPE ACUTE LEUKAEMIA
     Dosage: 272 MG, ONCE, INTRAVENOUS ; 544 MG, QDX3, INTRAVENOUS ; 544 MG, QDX3, INTRAVENOUS
     Route: 042
     Dates: start: 20081201, end: 20081201
  4. CYCLOPHOSPHAMIDE [Suspect]
     Indication: B-CELL TYPE ACUTE LEUKAEMIA
     Dosage: 272 MG, ONCE, INTRAVENOUS ; 544 MG, QDX3, INTRAVENOUS ; 544 MG, QDX3, INTRAVENOUS
     Route: 042
     Dates: start: 20081202, end: 20081204
  5. CYCLOPHOSPHAMIDE [Suspect]
     Indication: B-CELL TYPE ACUTE LEUKAEMIA
     Dosage: 272 MG, ONCE, INTRAVENOUS ; 544 MG, QDX3, INTRAVENOUS ; 544 MG, QDX3, INTRAVENOUS
     Route: 042
     Dates: start: 20081209, end: 20081211
  6. ONDANSETRON HCL [Concomitant]
  7. ALLOPURINOL [Concomitant]
  8. ACETAMINOPHEN [Concomitant]
  9. FLUCONAZOLE [Concomitant]
  10. DIPHENHYDRAMINE HCL [Concomitant]
  11. HYDROCORTISONE [Concomitant]

REACTIONS (16)
  - CELLULITIS [None]
  - CONSTIPATION [None]
  - DEPRESSION [None]
  - FEBRILE NEUTROPENIA [None]
  - HAEMOGLOBIN DECREASED [None]
  - HYPOKALAEMIA [None]
  - INSOMNIA [None]
  - LEUKOPENIA [None]
  - LYMPHOPENIA [None]
  - NAUSEA [None]
  - NEUTROPENIA [None]
  - NEUTROPENIC INFECTION [None]
  - PAIN [None]
  - PERIORBITAL CELLULITIS [None]
  - SINUSITIS [None]
  - THROMBOCYTOPENIA [None]
